FAERS Safety Report 18871615 (Version 1)
Quarter: 2021Q1

REPORT INFORMATION
  Report Type: Spontaneous
  Country: US (occurrence: US)
  Receive Date: 20210210
  Receipt Date: 20210210
  Transmission Date: 20210420
  Serious: No
  Sender: FDA-Public Use
  Company Number: US-ALLERGAN-2016377US

PATIENT
  Age: 55 Year
  Sex: Female
  Weight: 65.77 kg

DRUGS (2)
  1. TAZORAC [Suspect]
     Active Substance: TAZAROTENE
     Indication: PIGMENTATION DISORDER
     Dosage: UNK UNK, QD
     Route: 061
     Dates: start: 202004, end: 20200415
  2. SYNTHROID [Concomitant]
     Active Substance: LEVOTHYROXINE SODIUM
     Indication: THYROID DISORDER
     Dosage: UNK
     Route: 065

REACTIONS (6)
  - Off label use [Unknown]
  - Skin burning sensation [Recovering/Resolving]
  - Scratch [Unknown]
  - Skin exfoliation [Unknown]
  - Rash erythematous [Unknown]
  - Skin warm [Unknown]

NARRATIVE: CASE EVENT DATE: 202004
